FAERS Safety Report 13190684 (Version 2)
Quarter: 2017Q1

REPORT INFORMATION
  Report Type: Spontaneous
  Country: US (occurrence: US)
  Receive Date: 20170206
  Receipt Date: 20170329
  Transmission Date: 20170428
  Serious: No
  Sender: FDA-Public Use
  Company Number: US-ACTELION-A-US2017-149554

PATIENT
  Age: 81 Year
  Sex: Female

DRUGS (19)
  1. TRAMADOL. [Concomitant]
     Active Substance: TRAMADOL
  2. ALEVE [Concomitant]
     Active Substance: NAPROXEN SODIUM
  3. COLACE [Concomitant]
     Active Substance: DOCUSATE SODIUM
  4. LEVOTHYROXINE. [Concomitant]
     Active Substance: LEVOTHYROXINE
  5. SIMVASTATIN. [Concomitant]
     Active Substance: SIMVASTATIN
  6. VENTAVIS [Suspect]
     Active Substance: ILOPROST
     Dosage: UNK, 3X QD
     Route: 055
  7. PROCRIT [Concomitant]
     Active Substance: ERYTHROPOIETIN
  8. METAMUCIL [Concomitant]
     Active Substance: PLANTAGO SEED
  9. IRON [Concomitant]
     Active Substance: IRON
  10. PANTOPRAZOLE [Concomitant]
     Active Substance: PANTOPRAZOLE SODIUM
  11. VITAMIN D [Concomitant]
     Active Substance: CHOLECALCIFEROL
  12. VENTAVIS [Suspect]
     Active Substance: ILOPROST
     Indication: PULMONARY ARTERIAL HYPERTENSION
     Dosage: 20 MCG/ML
     Route: 055
  13. ADEMPAS [Concomitant]
     Active Substance: RIOCIGUAT
  14. ELIQUIS [Concomitant]
     Active Substance: APIXABAN
  15. SPIRONOLACTONE. [Concomitant]
     Active Substance: SPIRONOLACTONE
  16. CARVEDILOL. [Concomitant]
     Active Substance: CARVEDILOL
  17. OPSUMIT [Suspect]
     Active Substance: MACITENTAN
     Indication: PULMONARY ARTERIAL HYPERTENSION
     Dosage: 10 MG, QD
     Route: 048
     Dates: start: 20150529
  18. FUROSEMIDE. [Concomitant]
     Active Substance: FUROSEMIDE
  19. COQ10 [Concomitant]
     Active Substance: UBIDECARENONE

REACTIONS (6)
  - Fatigue [Not Recovered/Not Resolved]
  - Drug dose omission [Not Recovered/Not Resolved]
  - Muscular weakness [Unknown]
  - Wrist fracture [Recovering/Resolving]
  - Neck pain [Not Recovered/Not Resolved]
  - Hand fracture [Recovering/Resolving]

NARRATIVE: CASE EVENT DATE: 201701
